FAERS Safety Report 7067293-6 (Version None)
Quarter: 2010Q4

REPORT INFORMATION
  Report Type: 
  Country: None (occurrence: None)
  Receive Date: 20101022
  Receipt Date: 20101022
  Transmission Date: 20110411
  Serious: Yes (Hospitalization)
  Sender: FDA-Public Use
  Company Number: None

PATIENT
  Age: 33 Year
  Sex: Male

DRUGS (1)
  1. CIMZIA [Suspect]
     Indication: CROHN'S DISEASE
     Dosage: 200MG X 2 INJECT SIMULTANEOUSLY EVERY 4 WEEKS SUBCUTANEOUS INJECTION
     Route: 058
     Dates: end: 20100906

REACTIONS (2)
  - DEFORMITY [None]
  - LIMB DEFORMITY [None]
